FAERS Safety Report 10352012 (Version 1)
Quarter: 2014Q3

REPORT INFORMATION
  Report Type: Spontaneous
  Country: US (occurrence: US)
  Receive Date: 20140730
  Receipt Date: 20140730
  Transmission Date: 20150326
  Serious: No
  Sender: FDA-Public Use
  Company Number: US-ABBVIE-14P-163-1248741-00

PATIENT
  Age: 59 Year
  Sex: Female
  Weight: 52.21 kg

DRUGS (2)
  1. VITAMIN D [Concomitant]
     Active Substance: CHOLECALCIFEROL
     Indication: PRODUCT USED FOR UNKNOWN INDICATION
  2. SYNTHROID [Suspect]
     Active Substance: LEVOTHYROXINE SODIUM
     Indication: AUTOIMMUNE THYROIDITIS
     Dates: start: 1993

REACTIONS (6)
  - Haematochezia [Unknown]
  - Weight decreased [Not Recovered/Not Resolved]
  - Hypertension [Unknown]
  - Raynaud^s phenomenon [Not Recovered/Not Resolved]
  - Coeliac disease [Not Recovered/Not Resolved]
  - Diarrhoea [Not Recovered/Not Resolved]

NARRATIVE: CASE EVENT DATE: 2003
